FAERS Safety Report 17482886 (Version 2)
Quarter: 2021Q1

REPORT INFORMATION
  Report Type: Spontaneous
  Country: GR (occurrence: GR)
  Receive Date: 20200302
  Receipt Date: 20210329
  Transmission Date: 20210419
  Serious: Yes (Hospitalization)
  Sender: FDA-Public Use
  Company Number: GR-IGSA-SR10009943

PATIENT

DRUGS (88)
  1. CANCIDAS [Suspect]
     Active Substance: CASPOFUNGIN ACETATE
     Indication: LEUKOPENIA
  2. CANCIDAS [Suspect]
     Active Substance: CASPOFUNGIN ACETATE
     Indication: DIFFUSE LARGE B-CELL LYMPHOMA
  3. CISPLATIN. [Suspect]
     Active Substance: CISPLATIN
     Dosage: 38 MG, UNKNOWN
     Route: 042
     Dates: start: 20191119, end: 20200113
  4. ALDACTONE [Suspect]
     Active Substance: SPIRONOLACTONE
     Indication: NON-HODGKIN^S LYMPHOMA
     Dosage: 100 MG, UNKNOWN
     Route: 048
     Dates: start: 20200105, end: 20200112
  5. ALDACTONE [Suspect]
     Active Substance: SPIRONOLACTONE
     Indication: LEUKOPENIA
     Dosage: UNK, UNKNOWN
     Route: 042
  6. ALDACTONE [Suspect]
     Active Substance: SPIRONOLACTONE
     Indication: DIFFUSE LARGE B-CELL LYMPHOMA
  7. VEPESID [Suspect]
     Active Substance: ETOPOSIDE
     Indication: ANAEMIA
  8. NORVASC [Suspect]
     Active Substance: AMLODIPINE BESYLATE
     Indication: LEUKOPENIA
     Dosage: UNK
  9. FILGRASTIM [Suspect]
     Active Substance: FILGRASTIM
     Indication: LEUKOPENIA
     Dosage: UNK UNK, UNKNOWN
     Route: 058
     Dates: start: 20190523, end: 20200117
  10. FILGRASTIM [Suspect]
     Active Substance: FILGRASTIM
     Indication: NON-HODGKIN^S LYMPHOMA
  11. ARACYTINE [Suspect]
     Active Substance: CYTARABINE
     Indication: NON-HODGKIN^S LYMPHOMA
     Dosage: 3 G, UNKNOWN
     Route: 042
     Dates: start: 20191123, end: 20200113
  12. ESHAP [Suspect]
     Active Substance: CISPLATIN\CYTARABINE\ETOPOSIDE\METHYLPREDNISOLONE (ESHAP)
     Indication: HYPERTENSION
  13. CHOP [Suspect]
     Active Substance: CYCLOPHOSPHAMIDE\DOXORUBICIN\PREDNISONE\VINCRISTINE
     Indication: ANAEMIA
  14. PREDNISONE. [Suspect]
     Active Substance: PREDNISONE
     Indication: ANAEMIA
  15. HUMAN SERUM ALBUMIN [Suspect]
     Active Substance: ALBUMIN HUMAN
     Indication: HYPERTENSION
  16. CANCIDAS [Suspect]
     Active Substance: CASPOFUNGIN ACETATE
     Indication: NON-HODGKIN^S LYMPHOMA
     Dosage: 50 MG, UNKNOWN
     Route: 042
     Dates: start: 20200105, end: 20200113
  17. VEPESID [Suspect]
     Active Substance: ETOPOSIDE
     Indication: NON-HODGKIN^S LYMPHOMA
     Dosage: UNK, UNKNOWN
     Route: 058
  18. VEPESID [Suspect]
     Active Substance: ETOPOSIDE
     Indication: HYPERTENSION
  19. MABTHERA [Suspect]
     Active Substance: RITUXIMAB
     Indication: DIFFUSE LARGE B-CELL LYMPHOMA
     Dosage: 1400 MG, UNKNOWN
     Route: 058
     Dates: start: 20191113, end: 20191210
  20. MABTHERA [Suspect]
     Active Substance: RITUXIMAB
     Indication: LEUKOPENIA
  21. CHLORPHENAMINE [Suspect]
     Active Substance: CHLORPHENIRAMINE MALEATE
     Indication: NON-HODGKIN^S LYMPHOMA
     Dosage: UNK, UNKNOWN
     Route: 042
  22. ARACYTINE [Suspect]
     Active Substance: CYTARABINE
     Dosage: UNK UNK, UNKNOWN
     Route: 058
  23. CUBICIN [Suspect]
     Active Substance: DAPTOMYCIN
     Indication: NON-HODGKIN^S LYMPHOMA
     Dosage: 350 MG, UNKNOWN
     Route: 042
     Dates: start: 20200102, end: 20200113
  24. CHOP [Suspect]
     Active Substance: CYCLOPHOSPHAMIDE\DOXORUBICIN\PREDNISONE\VINCRISTINE
     Indication: DIFFUSE LARGE B-CELL LYMPHOMA
     Dosage: UNK, UNKNOWN
     Route: 065
     Dates: start: 20190513, end: 20191013
  25. CHOP [Suspect]
     Active Substance: CYCLOPHOSPHAMIDE\DOXORUBICIN\PREDNISONE\VINCRISTINE
     Indication: NON-HODGKIN^S LYMPHOMA
  26. CHOP [Suspect]
     Active Substance: CYCLOPHOSPHAMIDE\DOXORUBICIN\PREDNISONE\VINCRISTINE
     Indication: HYPERTENSION
  27. MEROPENEM. [Suspect]
     Active Substance: MEROPENEM
     Indication: NON-HODGKIN^S LYMPHOMA
     Dosage: 2 G, UNKNOWN
     Route: 042
     Dates: start: 20200103, end: 20200113
  28. PREDNISONE. [Suspect]
     Active Substance: PREDNISONE
     Indication: DIFFUSE LARGE B-CELL LYMPHOMA
  29. CANCIDAS [Suspect]
     Active Substance: CASPOFUNGIN ACETATE
     Indication: HYPERTENSION
  30. ALDACTONE [Suspect]
     Active Substance: SPIRONOLACTONE
     Indication: HYPERTENSION
  31. VEPESID [Suspect]
     Active Substance: ETOPOSIDE
     Indication: LEUKOPENIA
  32. MABTHERA [Suspect]
     Active Substance: RITUXIMAB
     Indication: NON-HODGKIN^S LYMPHOMA
     Dosage: 1400 MG, UNKNOWN
     Route: 058
     Dates: start: 20190625, end: 20191009
  33. NORVASC [Suspect]
     Active Substance: AMLODIPINE BESYLATE
     Indication: ANAEMIA
     Dosage: UNK, UNKNOWN
     Route: 058
  34. DOXORUBICIN [Suspect]
     Active Substance: DOXORUBICIN
     Indication: NON-HODGKIN^S LYMPHOMA
     Dosage: 75 MG, UNKNOWN
     Route: 042
     Dates: start: 20190513, end: 20191009
  35. DOXORUBICIN [Suspect]
     Active Substance: DOXORUBICIN
     Indication: ANAEMIA
  36. ESHAP [Suspect]
     Active Substance: CISPLATIN\CYTARABINE\ETOPOSIDE\METHYLPREDNISOLONE (ESHAP)
     Indication: DIFFUSE LARGE B-CELL LYMPHOMA
     Dosage: UNK, UNKNOWN
     Route: 065
     Dates: start: 20191113, end: 20191223
  37. CHOP [Suspect]
     Active Substance: CYCLOPHOSPHAMIDE\DOXORUBICIN\PREDNISONE\VINCRISTINE
     Indication: LEUKOPENIA
  38. LASIX [Suspect]
     Active Substance: FUROSEMIDE
     Indication: HYPERTENSION
  39. LASIX [Suspect]
     Active Substance: FUROSEMIDE
     Indication: LEUKOPENIA
  40. EPOETIN [Suspect]
     Active Substance: ERYTHROPOIETIN
     Indication: ANAEMIA
     Dosage: UNK, UNKNOWN
     Route: 058
     Dates: start: 20190523, end: 20200124
  41. ERYTHROPOIETIN [Suspect]
     Active Substance: ERYTHROPOIETIN
     Indication: LEUKOPENIA
  42. ERYTHROPOIETIN [Suspect]
     Active Substance: ERYTHROPOIETIN
     Indication: DIFFUSE LARGE B-CELL LYMPHOMA
  43. PREDNISONE. [Suspect]
     Active Substance: PREDNISONE
     Indication: HYPERTENSION
     Dosage: UNK
  44. VALTREX [Suspect]
     Active Substance: VALACYCLOVIR HYDROCHLORIDE
     Indication: DIFFUSE LARGE B-CELL LYMPHOMA
     Dosage: 500 MG, UNKNOWN
     Route: 048
     Dates: start: 20190513, end: 20190516
  45. CHLORPHENAMINE [Suspect]
     Active Substance: CHLORPHENIRAMINE MALEATE
     Indication: HYPERTENSION
  46. DOXORUBICIN [Suspect]
     Active Substance: DOXORUBICIN
     Indication: LEUKOPENIA
  47. ESHAP [Suspect]
     Active Substance: CISPLATIN\CYTARABINE\ETOPOSIDE\METHYLPREDNISOLONE (ESHAP)
     Indication: NON-HODGKIN^S LYMPHOMA
  48. LASIX [Suspect]
     Active Substance: FUROSEMIDE
     Indication: NON-HODGKIN^S LYMPHOMA
     Dosage: UNK, UNKNOWN
     Route: 042
     Dates: start: 20200110, end: 20200113
  49. MABTHERA [Suspect]
     Active Substance: RITUXIMAB
     Indication: ANAEMIA
     Dosage: 650 MILLIGRAM, UNKNOWN
     Route: 042
     Dates: start: 20191222, end: 20200113
  50. MABTHERA [Suspect]
     Active Substance: RITUXIMAB
     Indication: HYPERTENSION
  51. NORVASC [Suspect]
     Active Substance: AMLODIPINE BESYLATE
     Indication: HYPERTENSION
     Dosage: 5 MG, UNKNOWN
     Route: 048
     Dates: start: 20190515, end: 20190516
  52. NORVASC [Suspect]
     Active Substance: AMLODIPINE BESYLATE
     Indication: NON-HODGKIN^S LYMPHOMA
  53. OMEPRAZOLE. [Suspect]
     Active Substance: OMEPRAZOLE
     Indication: NON-HODGKIN^S LYMPHOMA
     Dosage: UNK, UNKNOWN
     Route: 042
     Dates: start: 20191223, end: 20200113
  54. RITUXAN HYCELA [Suspect]
     Active Substance: HYALURONIDASE (HUMAN RECOMBINANT)\RITUXIMAB
     Indication: DIFFUSE LARGE B-CELL LYMPHOMA
     Dosage: UNK, UNKNOWN
     Route: 058
     Dates: start: 20190513, end: 20190625
  55. CUBICIN [Suspect]
     Active Substance: DAPTOMYCIN
     Indication: ANAEMIA
  56. CUBICIN [Suspect]
     Active Substance: DAPTOMYCIN
     Indication: HYPERTENSION
  57. LASIX [Suspect]
     Active Substance: FUROSEMIDE
     Indication: DIFFUSE LARGE B-CELL LYMPHOMA
  58. HUMAN SERUM ALBUMIN [Suspect]
     Active Substance: ALBUMIN HUMAN
     Indication: NON-HODGKIN^S LYMPHOMA
     Dosage: 100 MG, UNKNOWN
     Route: 042
     Dates: start: 20200110, end: 20200113
  59. HUMAN SERUM ALBUMIN [Suspect]
     Active Substance: ALBUMIN HUMAN
     Indication: DIFFUSE LARGE B-CELL LYMPHOMA
  60. RITUXIMAB. [Suspect]
     Active Substance: RITUXIMAB
     Dosage: UNK UNK, UNKNOWN
     Route: 042
     Dates: start: 20190513, end: 20191013
  61. FILGRASTIM [Suspect]
     Active Substance: FILGRASTIM
     Indication: ANAEMIA
  62. FILGRASTIM [Suspect]
     Active Substance: FILGRASTIM
     Indication: DIFFUSE LARGE B-CELL LYMPHOMA
  63. CUBICIN [Suspect]
     Active Substance: DAPTOMYCIN
     Indication: LEUKOPENIA
  64. ESHAP [Suspect]
     Active Substance: CISPLATIN\CYTARABINE\ETOPOSIDE\METHYLPREDNISOLONE (ESHAP)
     Indication: LEUKOPENIA
  65. LASIX [Suspect]
     Active Substance: FUROSEMIDE
     Indication: ANAEMIA
  66. HUMAN SERUM ALBUMIN [Suspect]
     Active Substance: ALBUMIN HUMAN
     Indication: LEUKOPENIA
  67. RITUXIMAB. [Suspect]
     Active Substance: RITUXIMAB
     Indication: DIFFUSE LARGE B-CELL LYMPHOMA
     Dosage: UNK UNK, UNKNOWN
     Route: 042
     Dates: start: 20191113, end: 20191223
  68. ALDACTONE [Suspect]
     Active Substance: SPIRONOLACTONE
     Indication: ANAEMIA
  69. VEPESID [Suspect]
     Active Substance: ETOPOSIDE
     Indication: DIFFUSE LARGE B-CELL LYMPHOMA
     Dosage: 90 MG, UNKNOWN
     Route: 042
     Dates: start: 20191119, end: 20200113
  70. NORVASC [Suspect]
     Active Substance: AMLODIPINE BESYLATE
     Indication: DIFFUSE LARGE B-CELL LYMPHOMA
  71. VALTREX [Suspect]
     Active Substance: VALACYCLOVIR HYDROCHLORIDE
     Indication: NON-HODGKIN^S LYMPHOMA
     Dosage: UNK UNK, UNKNOWN
     Route: 058
  72. DOXORUBICIN [Suspect]
     Active Substance: DOXORUBICIN
     Indication: HYPERTENSION
     Dosage: UNK
     Route: 058
  73. DOXORUBICIN [Suspect]
     Active Substance: DOXORUBICIN
     Indication: DIFFUSE LARGE B-CELL LYMPHOMA
  74. FILGRASTIM [Suspect]
     Active Substance: FILGRASTIM
     Indication: HYPERTENSION
     Dosage: UNK
  75. CUBICIN [Suspect]
     Active Substance: DAPTOMYCIN
     Indication: DIFFUSE LARGE B-CELL LYMPHOMA
  76. ESHAP [Suspect]
     Active Substance: CISPLATIN\CYTARABINE\ETOPOSIDE\METHYLPREDNISOLONE (ESHAP)
     Indication: ANAEMIA
  77. HUMAN SERUM ALBUMIN [Suspect]
     Active Substance: ALBUMIN HUMAN
     Indication: ANAEMIA
  78. CANCIDAS [Suspect]
     Active Substance: CASPOFUNGIN ACETATE
     Indication: ANAEMIA
  79. CISPLATIN. [Suspect]
     Active Substance: CISPLATIN
     Indication: NON-HODGKIN^S LYMPHOMA
     Dosage: UNK, UNKNOWN
     Route: 058
  80. VALTREX [Suspect]
     Active Substance: VALACYCLOVIR HYDROCHLORIDE
     Indication: LEUKOPENIA
     Dosage: 500 G, UNKNOWN
     Route: 048
     Dates: start: 20200108, end: 20200113
  81. VALTREX [Suspect]
     Active Substance: VALACYCLOVIR HYDROCHLORIDE
     Indication: ANAEMIA
     Dosage: UNK UNK, UNKNOWN
     Route: 042
  82. VALTREX [Suspect]
     Active Substance: VALACYCLOVIR HYDROCHLORIDE
     Indication: HYPERTENSION
  83. CHLORPHENAMINE [Suspect]
     Active Substance: CHLORPHENIRAMINE MALEATE
     Indication: ANAEMIA
     Dosage: UNK, UNKNOWN
     Route: 048
     Dates: start: 20200110, end: 20200112
  84. CHLORPHENAMINE [Suspect]
     Active Substance: CHLORPHENIRAMINE MALEATE
     Indication: LEUKOPENIA
  85. CHLORPHENAMINE [Suspect]
     Active Substance: CHLORPHENIRAMINE MALEATE
     Indication: DIFFUSE LARGE B-CELL LYMPHOMA
  86. ERYTHROPOIETIN [Suspect]
     Active Substance: ERYTHROPOIETIN
     Indication: HYPERTENSION
     Dosage: UNK
  87. ERYTHROPOIETIN [Suspect]
     Active Substance: ERYTHROPOIETIN
     Indication: ANAEMIA
  88. PREDNISONE. [Suspect]
     Active Substance: PREDNISONE
     Indication: LEUKOPENIA

REACTIONS (2)
  - Diffuse large B-cell lymphoma refractory [Unknown]
  - Neoplasm progression [Unknown]
